FAERS Safety Report 5720029-0 (Version None)
Quarter: 2008Q2

REPORT INFORMATION
  Report Type: 
  Country: None (occurrence: None)
  Receive Date: 20080423
  Receipt Date: 20071003
  Transmission Date: 20081010
  Serious: Yes (Other)
  Sender: FDA-Public Use
  Company Number: 231704

PATIENT

DRUGS (4)
  1. AVASTIN [Suspect]
     Indication: METASTATIC NEOPLASM
  2. FLUOROURACIL [Suspect]
     Indication: METASTATIC NEOPLASM
  3. LEUCOVORIN CALCIUM [Suspect]
     Indication: METASTATIC NEOPLASM
  4. OXALIPLATIN [Suspect]
     Indication: METASTATIC NEOPLASM

REACTIONS (1)
  - ENTEROCUTANEOUS FISTULA [None]
